FAERS Safety Report 5742823-2 (Version None)
Quarter: 2008Q2

REPORT INFORMATION
  Report Type: 
  Country: None (occurrence: None)
  Receive Date: 20080515
  Receipt Date: 20080515
  Transmission Date: 20081010
  Serious: Yes (Hospitalization)
  Sender: FDA-Public Use
  Company Number: None

PATIENT
  Age: 62 Year
  Sex: Male
  Weight: 31.4796 kg

DRUGS (2)
  1. DIAZEPAM [Suspect]
     Indication: ALCOHOL WITHDRAWAL SYNDROME
     Dosage: 5 MG TID PO
     Route: 048
     Dates: start: 20080315, end: 20080317
  2. LORAZEPAM [Suspect]
     Indication: ALCOHOL WITHDRAWAL SYNDROME
     Dosage: 2 MG PRN PO
     Route: 048
     Dates: start: 20080315, end: 20080318

REACTIONS (4)
  - CONFUSIONAL STATE [None]
  - OXYGEN SATURATION DECREASED [None]
  - SOMNOLENCE [None]
  - TACHYPNOEA [None]
